FAERS Safety Report 11616122 (Version 1)
Quarter: 2015Q4

REPORT INFORMATION
  Report Type: Spontaneous
  Country: US (occurrence: None)
  Receive Date: 20151008
  Receipt Date: 20151008
  Transmission Date: 20160304
  Serious: Yes (Hospitalization)
  Sender: FDA-Public Use
  Company Number: None

PATIENT
  Age: 41 Year
  Sex: Female
  Weight: 66 kg

DRUGS (14)
  1. PRINIVIL [Concomitant]
     Active Substance: LISINOPRIL
  2. BECANASE [Concomitant]
  3. ALBUTEROL. [Concomitant]
     Active Substance: ALBUTEROL
  4. DACLIZUMAB [Concomitant]
     Active Substance: DACLIZUMAB
  5. LEVOTHROID [Concomitant]
     Active Substance: LEVOTHYROXINE SODIUM
  6. FLOVENT [Concomitant]
     Active Substance: FLUTICASONE PROPIONATE
  7. INSULIN [Suspect]
     Active Substance: INSULIN NOS
     Indication: TYPE 1 DIABETES MELLITUS
     Dosage: 0.2-0.4 U/HR (BQ PUMP)
  8. SIROLIMUS. [Concomitant]
     Active Substance: SIROLIMUS
  9. HYDROCORTISONE. [Concomitant]
     Active Substance: HYDROCORTISONE
  10. ENBREL [Suspect]
     Active Substance: ETANERCEPT
     Indication: PANCREAS ISLET CELL TRANSPLANT
     Route: 058
     Dates: start: 20041124, end: 20041127
  11. TACROLIMUS. [Concomitant]
     Active Substance: TACROLIMUS
  12. MAVACOR [Concomitant]
  13. COLCHICINE. [Concomitant]
     Active Substance: COLCHICINE
  14. THEO-DUR [Concomitant]
     Active Substance: THEOPHYLLINE ANHYDROUS

REACTIONS (8)
  - Blepharospasm [None]
  - Fatigue [None]
  - Anxiety [None]
  - Dyspnoea [None]
  - Altered state of consciousness [None]
  - Hypoglycaemia [None]
  - Movement disorder [None]
  - Tremor [None]

NARRATIVE: CASE EVENT DATE: 20041202
